FAERS Safety Report 23468669 (Version 2)
Quarter: 2024Q1

REPORT INFORMATION
  Report Type: Report from Study
  Country: NL (occurrence: NL)
  Receive Date: 20240202
  Receipt Date: 20240311
  Transmission Date: 20240410
  Serious: Yes (Hospitalization)
  Sender: FDA-Public Use
  Company Number: NL-ABBVIE-5440968

PATIENT
  Sex: Female
  Weight: 54 kg

DRUGS (7)
  1. CARBIDOPA\LEVODOPA [Suspect]
     Active Substance: CARBIDOPA\LEVODOPA
     Indication: Parkinson^s disease
     Dosage: REMAINS AT 16 HOURS
     Route: 050
     Dates: start: 20170606
  2. CARBIDOPA\LEVODOPA [Suspect]
     Active Substance: CARBIDOPA\LEVODOPA
     Dosage: MD: 4.0ML, CD: 0.4ML/H, ED: 0.5ML REMAINS AT 16 HOURS
     Route: 050
     Dates: start: 20240123
  3. CARBIDOPA\LEVODOPA [Suspect]
     Active Substance: CARBIDOPA\LEVODOPA
     Dosage: MD: 4.0ML, CD: 0.3ML/H, ED: 0.5ML?REMAINS AT 16 HOURS
     Route: 050
     Dates: start: 20231017, end: 20231220
  4. CARBIDOPA\LEVODOPA [Suspect]
     Active Substance: CARBIDOPA\LEVODOPA
     Dosage: MD: 4.0ML, CD: 0.4ML/H, ED: 0.5ML?REMAINS AT 16 HOURS
     Route: 050
     Dates: start: 20231220, end: 20240123
  5. ESCITALOPRAM [Concomitant]
     Active Substance: ESCITALOPRAM OXALATE
     Indication: Panic attack
  6. LORAZEPAM [Concomitant]
     Active Substance: LORAZEPAM
     Indication: Product used for unknown indication
  7. AMANTADINE [Concomitant]
     Active Substance: AMANTADINE
     Indication: Dyskinesia
     Route: 048
     Dates: start: 20220209

REACTIONS (29)
  - Fall [Recovered/Resolved]
  - Loss of personal independence in daily activities [Unknown]
  - Pain [Not Recovered/Not Resolved]
  - Stoma site pain [Unknown]
  - Muscular weakness [Not Recovered/Not Resolved]
  - Limb discomfort [Not Recovered/Not Resolved]
  - Stoma site discharge [Recovered/Resolved]
  - Constipation [Not Recovered/Not Resolved]
  - Muscle tightness [Not Recovered/Not Resolved]
  - On and off phenomenon [Not Recovered/Not Resolved]
  - Dyskinesia [Not Recovered/Not Resolved]
  - Panic reaction [Not Recovered/Not Resolved]
  - Nausea [Not Recovered/Not Resolved]
  - Gait inability [Not Recovered/Not Resolved]
  - Balance disorder [Not Recovered/Not Resolved]
  - Nocturia [Not Recovered/Not Resolved]
  - Memory impairment [Not Recovered/Not Resolved]
  - Muscle spasms [Not Recovered/Not Resolved]
  - Agitation [Not Recovered/Not Resolved]
  - Hallucination [Not Recovered/Not Resolved]
  - Myalgia [Not Recovered/Not Resolved]
  - Tension [Not Recovered/Not Resolved]
  - Dysstasia [Not Recovered/Not Resolved]
  - Fine motor skill dysfunction [Not Recovered/Not Resolved]
  - Restlessness [Not Recovered/Not Resolved]
  - Device occlusion [Unknown]
  - Muscle rigidity [Not Recovered/Not Resolved]
  - Stoma site inflammation [Unknown]
  - Stress [Unknown]

NARRATIVE: CASE EVENT DATE: 20230101
